FAERS Safety Report 22774207 (Version 2)
Quarter: 2024Q1

REPORT INFORMATION
  Report Type: Report from Study
  Country: US (occurrence: US)
  Receive Date: 20230801
  Receipt Date: 20240322
  Transmission Date: 20240409
  Serious: Yes (Hospitalization)
  Sender: FDA-Public Use
  Company Number: US-ABBVIE-5348868

PATIENT
  Sex: Female
  Weight: 90.718 kg

DRUGS (1)
  1. SKYRIZI [Suspect]
     Active Substance: RISANKIZUMAB-RZAA
     Indication: Psoriasis
     Route: 058
     Dates: start: 202305, end: 202307

REACTIONS (13)
  - Human ehrlichiosis [Not Recovered/Not Resolved]
  - Renal disorder [Unknown]
  - Cystitis [Not Recovered/Not Resolved]
  - Platelet count decreased [Unknown]
  - White blood cell count abnormal [Not Recovered/Not Resolved]
  - Pain [Unknown]
  - Ear infection [Not Recovered/Not Resolved]
  - Lethargy [Unknown]
  - Hyperhidrosis [Not Recovered/Not Resolved]
  - Immunosuppression [Unknown]
  - Nephrolithiasis [Not Recovered/Not Resolved]
  - Musculoskeletal discomfort [Not Recovered/Not Resolved]
  - Urine abnormality [Unknown]

NARRATIVE: CASE EVENT DATE: 20230101
